FAERS Safety Report 5481746-3 (Version None)
Quarter: 2007Q4

REPORT INFORMATION
  Report Type: 
  Country: None (occurrence: None)
  Receive Date: 20071010
  Receipt Date: 20071003
  Transmission Date: 20080405
  Serious: Yes (Life-Threatening, Hospitalization)
  Sender: FDA-Public Use
  Company Number: ES-WYE-G00424107

PATIENT
  Age: 50 Year
  Sex: Female

DRUGS (7)
  1. VANDRAL RETARD [Suspect]
     Indication: MAJOR DEPRESSION
     Route: 048
     Dates: start: 20070217, end: 20070608
  2. CINITAPRIDE [Concomitant]
     Indication: MAJOR DEPRESSION
     Route: 048
     Dates: start: 20060101, end: 20070608
  3. TRANKIMAZIN [Concomitant]
     Indication: MAJOR DEPRESSION
     Route: 047
     Dates: start: 20060101, end: 20070608
  4. ZYPREXA [Concomitant]
     Indication: MAJOR DEPRESSION
     Dates: start: 20060101, end: 20070608
  5. RABEPRAZOLE SODIUM [Concomitant]
     Dosage: UNKNOWN
  6. ANAFRANIL [Interacting]
     Indication: MAJOR DEPRESSION
     Route: 048
     Dates: start: 20060115, end: 20070608
  7. TOFRANIL [Interacting]
     Indication: MAJOR DEPRESSION
     Route: 048
     Dates: start: 20060101, end: 20070608

REACTIONS (3)
  - DRUG INTERACTION [None]
  - RHABDOMYOLYSIS [None]
  - SEROTONIN SYNDROME [None]
